FAERS Safety Report 5129254-3 (Version None)
Quarter: 2006Q4

REPORT INFORMATION
  Report Type: 
  Country: None (occurrence: None)
  Receive Date: 20061011
  Receipt Date: 20061002
  Transmission Date: 20070319
  Serious: Yes (Death)
  Sender: FDA-Public Use
  Company Number: TCI2006A04366

PATIENT
  Age: 75 Year
  Sex: Male

DRUGS (2)
  1. ACTOS [Suspect]
     Indication: DIABETES MELLITUS
     Dosage: UNK. PER ORAL
     Route: 048
     Dates: start: 20060901
  2. RANALDINE             (TICLOPIDINE HYDROCHLORIDE) [Concomitant]

REACTIONS (1)
  - SUDDEN DEATH [None]
